FAERS Safety Report 23960627 (Version 3)
Quarter: 2024Q3

REPORT INFORMATION
  Report Type: Spontaneous
  Country: CZ (occurrence: CZ)
  Receive Date: 20240611
  Receipt Date: 20240718
  Transmission Date: 20241016
  Serious: Yes (Other)
  Sender: ACCORD
  Company Number: CZ-Accord-428682

PATIENT
  Age: 41 Year
  Sex: Female

DRUGS (10)
  1. CARMUSTINE [Suspect]
     Active Substance: CARMUSTINE
     Indication: Peripheral T-cell lymphoma unspecified
     Dates: start: 20230906
  2. ETOPOSIDE [Suspect]
     Active Substance: ETOPOSIDE
     Indication: Peripheral T-cell lymphoma unspecified
     Dates: start: 20230906
  3. CYTARABINE [Suspect]
     Active Substance: CYTARABINE
     Indication: Peripheral T-cell lymphoma unspecified
     Dates: start: 20230906
  4. MELPHALAN [Suspect]
     Active Substance: MELPHALAN
     Indication: Peripheral T-cell lymphoma unspecified
     Dates: start: 20230906
  5. CARMUSTINE [Suspect]
     Active Substance: CARMUSTINE
     Indication: Haemophagocytic lymphohistiocytosis
     Dates: start: 20230906
  6. ETOPOSIDE [Suspect]
     Active Substance: ETOPOSIDE
     Indication: Haemophagocytic lymphohistiocytosis
     Dates: start: 20230906
  7. CYTARABINE [Suspect]
     Active Substance: CYTARABINE
     Indication: Haemophagocytic lymphohistiocytosis
     Dates: start: 20230906
  8. MELPHALAN [Suspect]
     Active Substance: MELPHALAN
     Indication: Haemophagocytic lymphohistiocytosis
     Dates: start: 20230906
  9. CYTARABINE [Suspect]
     Active Substance: CYTARABINE
     Indication: Bone marrow conditioning regimen
     Dates: start: 20230906
  10. MELPHALAN [Suspect]
     Active Substance: MELPHALAN
     Indication: Bone marrow conditioning regimen
     Dates: start: 20230906

REACTIONS (1)
  - Stomatitis [Unknown]
